FAERS Safety Report 9513255 (Version 1)
Quarter: 2013Q1

REPORT INFORMATION
  Report Type: Spontaneous
  Country: US (occurrence: None)
  Receive Date: 20130305
  Receipt Date: 20130305
  Transmission Date: 20140127
  Serious: Yes (Other)
  Sender: FDA-Public Use
  Company Number: 163-21880-12102538

PATIENT
  Age: 57 Year
  Sex: Male
  Weight: 117.94 kg

DRUGS (6)
  1. REVLIMID [Suspect]
     Indication: PLASMA CELL MYELOMA
     Dosage: 14 IN 14 DAYS
     Route: 048
     Dates: start: 20120910
  2. VELCADE [Suspect]
  3. BACTRIM (BACTRIM)UNKNOWN [Concomitant]
  4. LISINOPRIL (LISINOPRIL) UNKNOWN [Concomitant]
  5. PRAVASTATIN (PRAVASTATIN) UNKNOWN [Concomitant]
  6. VALTREX (VALACICLOVIR HYDROCHLORIDE) [Concomitant]

REACTIONS (1)
  - Fatigue [None]
